FAERS Safety Report 14749155 (Version 1)
Quarter: 2018Q2

REPORT INFORMATION
  Report Type: Spontaneous
  Country: US (occurrence: US)
  Receive Date: 20180411
  Receipt Date: 20180411
  Transmission Date: 20180711
  Serious: No
  Sender: FDA-Public Use
  Company Number: US-AMGEN-USASP2018010043

PATIENT
  Age: 75 Year
  Sex: Female

DRUGS (1)
  1. PROLIA [Suspect]
     Active Substance: DENOSUMAB
     Indication: OSTEOPOROSIS
     Dosage: 60 MG, Q6MO
     Route: 058
     Dates: start: 201606, end: 201706

REACTIONS (4)
  - Temporomandibular joint syndrome [Recovering/Resolving]
  - Tooth extraction [Unknown]
  - Pain in jaw [Unknown]
  - Swelling face [Unknown]

NARRATIVE: CASE EVENT DATE: 2017
